FAERS Safety Report 7352378-7 (Version None)
Quarter: 2011Q1

REPORT INFORMATION
  Report Type: 
  Country: None (occurrence: None)
  Receive Date: 20110309
  Receipt Date: 20110309
  Transmission Date: 20110831
  Serious: Yes (Other)
  Sender: FDA-Public Use
  Company Number: None

PATIENT
  Age: 68 Year
  Sex: Female
  Weight: 77.1115 kg

DRUGS (5)
  1. OXYCONTIN [Concomitant]
  2. HIGH DOSE PAIN PILLS [Concomitant]
  3. GABAPENTIN [Suspect]
     Indication: GROIN PAIN
     Dosage: 100MG - BID - ORAL
     Route: 048
     Dates: end: 20101012
  4. GABAPENTIN [Suspect]
     Indication: ARTHRALGIA
     Dosage: 100MG - BID - ORAL
     Route: 048
     Dates: end: 20101012
  5. GABAPENTIN [Suspect]
     Indication: BACK PAIN
     Dosage: 100MG - BID - ORAL
     Route: 048
     Dates: end: 20101012

REACTIONS (6)
  - NAUSEA [None]
  - INTERVERTEBRAL DISC PROTRUSION [None]
  - DYSPEPSIA [None]
  - ABDOMINAL PAIN UPPER [None]
  - WEIGHT DECREASED [None]
  - PAROSMIA [None]
